FAERS Safety Report 9781852 (Version 2)
Quarter: 2013Q4

REPORT INFORMATION
  Report Type: Spontaneous
  Country: GB (occurrence: GB)
  Receive Date: 20131225
  Receipt Date: 20131228
  Transmission Date: 20140711
  Serious: Yes (Other)
  Sender: FDA-Public Use
  Company Number: GB-ROCHE-1325179

PATIENT
  Age: 60 Year
  Sex: Female

DRUGS (5)
  1. RITUXIMAB [Suspect]
     Indication: DIFFUSE LARGE B-CELL LYMPHOMA
     Dosage: EIGHT CYCLES
     Route: 065
     Dates: end: 2008
  2. CYCLOPHOSPHAMIDE [Concomitant]
     Indication: DIFFUSE LARGE B-CELL LYMPHOMA
     Dosage: EIGHT CYCLES
     Route: 065
     Dates: end: 2008
  3. DOXORUBICIN [Concomitant]
     Indication: DIFFUSE LARGE B-CELL LYMPHOMA
     Dosage: EIGHT CYCLES
     Route: 065
     Dates: end: 2008
  4. VINCRISTINE [Concomitant]
     Indication: DIFFUSE LARGE B-CELL LYMPHOMA
     Dosage: EIGHT CYCLES
     Route: 065
     Dates: end: 2008
  5. PREDNISOLONE [Concomitant]
     Indication: DIFFUSE LARGE B-CELL LYMPHOMA
     Dosage: EIGHT CYCLES
     Route: 065
     Dates: end: 2008

REACTIONS (1)
  - Peripheral T-cell lymphoma unspecified [Unknown]
